FAERS Safety Report 23178753 (Version 1)
Quarter: 2023Q4

REPORT INFORMATION
  Report Type: Spontaneous
  Country: US (occurrence: US)
  Receive Date: 20231113
  Receipt Date: 20231113
  Transmission Date: 20240110
  Serious: No
  Sender: FDA-Public Use
  Company Number: US-BEH-2018096301

PATIENT
  Age: 74 Year
  Sex: Female

DRUGS (2)
  1. HAEGARDA [Suspect]
     Active Substance: HUMAN C1-ESTERASE INHIBITOR
     Indication: Hereditary angioedema
     Dosage: 2000 IU, QW
     Route: 065
     Dates: start: 20171222
  2. HAEGARDA [Suspect]
     Active Substance: HUMAN C1-ESTERASE INHIBITOR
     Indication: Prophylaxis
     Dosage: UNK UNK, BIW
     Route: 058
     Dates: start: 20171222

REACTIONS (5)
  - Contusion [Unknown]
  - Infusion site vesicles [Unknown]
  - Injection site pain [Unknown]
  - Injection site erythema [Unknown]
  - Injection site vesicles [Unknown]
